FAERS Safety Report 7885091-8 (Version None)
Quarter: 2011Q4

REPORT INFORMATION
  Report Type: 
  Country: None (occurrence: None)
  Receive Date: 20111102
  Receipt Date: 20100721
  Transmission Date: 20120403
  Serious: No
  Sender: FDA-Public Use
  Company Number: US-BAYER-201029131NA

PATIENT
  Sex: Female

DRUGS (1)
  1. AVELOX [Suspect]
     Indication: SINUSITIS
     Dosage: 400 MG, UNK

REACTIONS (5)
  - COLD SWEAT [None]
  - PARAESTHESIA [None]
  - DIZZINESS [None]
  - SPEECH DISORDER [None]
  - NAUSEA [None]
